FAERS Safety Report 5338710-4 (Version None)
Quarter: 2007Q2

REPORT INFORMATION
  Report Type: 
  Country: None (occurrence: None)
  Receive Date: 20070530
  Receipt Date: 20070418
  Transmission Date: 20071010
  Serious: Yes (Other)
  Sender: FDA-Public Use
  Company Number: B0460113A

PATIENT
  Age: 40 Year
  Sex: Female
  Weight: 64 kg

DRUGS (1)
  1. MALARONE [Suspect]
     Indication: MALARIA PROPHYLAXIS
     Dosage: 1TAB PER DAY
     Route: 048
     Dates: start: 20070223, end: 20070223

REACTIONS (6)
  - ANGIOEDEMA [None]
  - DYSPHAGIA [None]
  - FACE OEDEMA [None]
  - LARYNGEAL OEDEMA [None]
  - PRURITUS GENERALISED [None]
  - SWELLING FACE [None]
